FAERS Safety Report 6195029-X (Version None)
Quarter: 2009Q2

REPORT INFORMATION
  Report Type: 
  Country: None (occurrence: None)
  Receive Date: 20090519
  Receipt Date: 20090514
  Transmission Date: 20091009
  Serious: Yes (Hospitalization)
  Sender: FDA-Public Use
  Company Number: B0574002A

PATIENT
  Age: 44 Year
  Sex: Female

DRUGS (1)
  1. AUGMENTIN '125' [Suspect]
     Route: 048
     Dates: start: 20070101, end: 20070101

REACTIONS (5)
  - ANAPHYLACTIC SHOCK [None]
  - DIARRHOEA [None]
  - LIP OEDEMA [None]
  - PRURITUS [None]
  - VOMITING [None]
